FAERS Safety Report 25457397 (Version 1)
Quarter: 2025Q2

REPORT INFORMATION
  Report Type: Spontaneous
  Country: HU (occurrence: HU)
  Receive Date: 20250619
  Receipt Date: 20250619
  Transmission Date: 20250716
  Serious: Yes (Hospitalization)
  Sender: NOVARTIS
  Company Number: HU-002147023-NVSC2025HU095530

PATIENT
  Age: 31 Year
  Sex: Male

DRUGS (2)
  1. ASCIMINIB [Suspect]
     Active Substance: ASCIMINIB
     Indication: Product used for unknown indication
     Dosage: 40 MG, BID
     Route: 065
     Dates: start: 20221014
  2. ALLOPURINOL [Concomitant]
     Active Substance: ALLOPURINOL
     Indication: Product used for unknown indication
     Dosage: 300 MG, BID
     Route: 065

REACTIONS (3)
  - Bite [Unknown]
  - Foreign body in eye [Recovered/Resolved]
  - Philadelphia chromosome negative [Recovering/Resolving]

NARRATIVE: CASE EVENT DATE: 20230720
